FAERS Safety Report 17823118 (Version 1)
Quarter: 2020Q2

REPORT INFORMATION
  Report Type: Spontaneous
  Country: US (occurrence: US)
  Receive Date: 20200524
  Receipt Date: 20200524
  Transmission Date: 20200714
  Serious: Yes (Other)
  Sender: FDA-Public Use
  Company Number: None

PATIENT
  Age: 54 Year
  Sex: Male
  Weight: 88 kg

DRUGS (11)
  1. SELINEXOR [Concomitant]
     Active Substance: SELINEXOR
     Dates: start: 20200523, end: 20200524
  2. TRAZODONE [Concomitant]
     Active Substance: TRAZODONE HYDROCHLORIDE
     Dates: start: 20200512, end: 20200524
  3. VANCOMYCIN [Concomitant]
     Active Substance: VANCOMYCIN
     Dates: start: 20200523, end: 20200524
  4. MIDAZOLAM. [Concomitant]
     Active Substance: MIDAZOLAM
     Dates: start: 20200521, end: 20200524
  5. NOREPINEPHRINE. [Concomitant]
     Active Substance: NOREPINEPHRINE
     Dates: start: 20200521, end: 20200524
  6. PIPERACILLIN/TAZOBACTAM [Concomitant]
     Active Substance: PIPERACILLIN SODIUM\TAZOBACTAM SODIUM
     Dates: start: 20200523, end: 20200524
  7. SENNA [Concomitant]
     Active Substance: SENNA LEAF\SENNOSIDES\SENNOSIDES A AND B
     Dates: start: 20200523, end: 20200524
  8. REMDESIVIR. [Suspect]
     Active Substance: REMDESIVIR
     Indication: COVID-19
     Route: 040
     Dates: start: 20200516, end: 20200523
  9. HEPARIN [Concomitant]
     Active Substance: HEPARIN SODIUM
     Dates: start: 20200523, end: 20200524
  10. PROPOFOL. [Concomitant]
     Active Substance: PROPOFOL
     Dates: start: 20200523, end: 20200524
  11. ZINC. [Concomitant]
     Active Substance: ZINC
     Dates: start: 20200512, end: 20200524

REACTIONS (1)
  - Acute kidney injury [None]

NARRATIVE: CASE EVENT DATE: 20200524
